FAERS Safety Report 24041636 (Version 1)
Quarter: 2024Q3

REPORT INFORMATION
  Report Type: Spontaneous
  Country: US (occurrence: None)
  Receive Date: 20240701
  Receipt Date: 20240701
  Transmission Date: 20241016
  Serious: No
  Sender: Public
  Company Number: None

PATIENT
  Age: 29 Year
  Sex: Female
  Weight: 54.45 kg

DRUGS (2)
  1. SUMATRIPTAN SUCCINATE [Suspect]
     Active Substance: SUMATRIPTAN SUCCINATE
     Indication: Migraine
     Dosage: 1 TABLET AS NEEDED ORAL
     Route: 048
     Dates: start: 20240630
  2. ZOLOFT [Concomitant]
     Active Substance: SERTRALINE HYDROCHLORIDE

REACTIONS (7)
  - Musculoskeletal stiffness [None]
  - Chest discomfort [None]
  - Throat tightness [None]
  - Trismus [None]
  - Pain in jaw [None]
  - Pain [None]
  - Chills [None]

NARRATIVE: CASE EVENT DATE: 20240630
